FAERS Safety Report 10456828 (Version 2)
Quarter: 2015Q3

REPORT INFORMATION
  Report Type: Spontaneous
  Country: DE (occurrence: None)
  Receive Date: 20140912
  Receipt Date: 20150701
  Transmission Date: 20151125
  Serious: Yes (Hospitalization)
  Sender: FDA-Public Use
  Company Number: TTX201200041

PATIENT
  Sex: Female

DRUGS (14)
  1. VINCRISTINE SULFATE LIPOSOME (VINCRISTINE SULFATE LIPOSOSME 2.25 MG/M2) INJECTION, 0.16MG/ML [Suspect]
     Active Substance: VINCRISTINE SULFATE
     Indication: NON-HODGKIN^S LYMPHOMA
     Dosage: 3.84 MG, EVERY 14 DAYS, INTRAVENOUS
     Route: 042
     Dates: start: 20120626
  2. CYCLOPHOSPHAMIDE (CYCLOPHOSPHAMIDE) [Suspect]
     Active Substance: CYCLOPHOSPHAMIDE
     Indication: NON-HODGKIN^S LYMPHOMA
     Route: 042
     Dates: start: 20120811, end: 20120811
  3. DOXORUBICIN /00330902/ (DOXORUBICIN HYDROCHLORIDE) [Suspect]
     Active Substance: DOXORUBICIN
     Indication: NON-HODGKIN^S LYMPHOMA
     Route: 042
     Dates: start: 20120811, end: 20120811
  4. ESOMEPRAZOLE [Concomitant]
     Active Substance: ESOMEPRAZOLE
  5. KALIUM /00031402/  (POTASSIUM CHLORIDE) [Concomitant]
  6. FUROSEMID /00032601/ (FUROSEMIDE) [Concomitant]
  7. ONDANSETRON [Concomitant]
     Active Substance: ONDANSETRON
  8. LEVOFLOXACIN. [Concomitant]
     Active Substance: LEVOFLOXACIN
  9. TIOTROPIUM BROMIDE [Concomitant]
     Active Substance: TIOTROPIUM BROMIDE
  10. MCP TROPFEN (METROCLOPRAMIDE HYDROCHLORIDE) [Concomitant]
  11. RITUXIMAB (RITUXIMAB) [Suspect]
     Active Substance: RITUXIMAB
     Indication: NON-HODGKIN^S LYMPHOMA
     Route: 042
     Dates: start: 20120810, end: 20120810
  12. PREDNISOLONE. [Suspect]
     Active Substance: PREDNISOLONE
     Indication: NON-HODGKIN^S LYMPHOMA
     Dates: start: 20120810, end: 20120815
  13. PEGFILGRASTIM [Concomitant]
     Active Substance: PEGFILGRASTIM
  14. EUGALAC (LACTULOSE) [Concomitant]

REACTIONS (2)
  - Urinary tract infection [None]
  - Atypical pneumonia [None]

NARRATIVE: CASE EVENT DATE: 20120822
